FAERS Safety Report 26073515 (Version 1)
Quarter: 2025Q4

REPORT INFORMATION
  Report Type: Report from Study
  Country: US (occurrence: US)
  Receive Date: 20251121
  Receipt Date: 20251121
  Transmission Date: 20260118
  Serious: Yes (Hospitalization, Other)
  Sender: ABBVIE
  Company Number: US-ABBVIE-6554185

PATIENT
  Age: 78 Year
  Sex: Male

DRUGS (1)
  1. HUMIRA [Suspect]
     Active Substance: ADALIMUMAB
     Indication: Product used for unknown indication
     Route: 058
     Dates: start: 20250718

REACTIONS (5)
  - Dizziness [Unknown]
  - Malaise [Not Recovered/Not Resolved]
  - Vascular graft [Unknown]
  - Cardioversion [Unknown]
  - Medical device implantation [Unknown]

NARRATIVE: CASE EVENT DATE: 20250101
